FAERS Safety Report 12953642 (Version 1)
Quarter: 2016Q4

REPORT INFORMATION
  Report Type: Spontaneous
  Country: FR (occurrence: FR)
  Receive Date: 20161118
  Receipt Date: 20161118
  Transmission Date: 20170207
  Serious: Yes (Hospitalization)
  Sender: FDA-Public Use
  Company Number: FR-ROCHE-1854751

PATIENT
  Age: 38 Year
  Sex: Male
  Weight: 87 kg

DRUGS (7)
  1. AERIUS [Concomitant]
     Active Substance: DESLORATADINE
  2. ATARAX [Concomitant]
     Active Substance: HYDROXYZINE\HYDROXYZINE HYDROCHLORIDE
  3. SALAZOPYRINE [Suspect]
     Active Substance: SULFASALAZINE
     Indication: POLYARTHRITIS
     Route: 048
     Dates: start: 20160831, end: 20160910
  4. CORTANCYL [Concomitant]
     Active Substance: PREDNISONE
     Route: 065
  5. APRANAX [Suspect]
     Active Substance: NAPROXEN
     Indication: POLYARTHRITIS
     Route: 048
     Dates: start: 20160831, end: 20160921
  6. AZITHROMYCIN ANHYDROUS. [Concomitant]
     Active Substance: AZITHROMYCIN ANHYDROUS
     Indication: BRONCHITIS
  7. SALAZOPYRINE [Suspect]
     Active Substance: SULFASALAZINE
     Route: 048
     Dates: start: 20160910, end: 20160921

REACTIONS (2)
  - Drug reaction with eosinophilia and systemic symptoms [Recovered/Resolved]
  - Asthenia [Recovered/Resolved]

NARRATIVE: CASE EVENT DATE: 20160916
